FAERS Safety Report 23531459 (Version 1)
Quarter: 2024Q1

REPORT INFORMATION
  Report Type: Spontaneous
  Country: US (occurrence: US)
  Receive Date: 20240216
  Receipt Date: 20240216
  Transmission Date: 20240409
  Serious: Yes (Other)
  Sender: FDA-Public Use
  Company Number: US-CLOVIS ONCOLOGY-CLO-2022-000230

PATIENT
  Sex: Female

DRUGS (10)
  1. RUCAPARIB [Suspect]
     Active Substance: RUCAPARIB
     Indication: Ovarian cancer
     Dosage: UNK
     Dates: start: 2020
  2. RUCAPARIB [Suspect]
     Active Substance: RUCAPARIB
     Dosage: 300 MILLIGRAM, BID
  3. RUCAPARIB [Suspect]
     Active Substance: RUCAPARIB
     Dosage: 200 MILLIGRAM, BID
     Route: 048
  4. RUCAPARIB [Suspect]
     Active Substance: RUCAPARIB
     Dosage: 300 MILLIGRAM, BID
     Route: 048
     Dates: start: 20200306, end: 20230504
  5. ELIQUIS [Concomitant]
     Active Substance: APIXABAN
     Indication: Product used for unknown indication
  6. PRAVASTATIN [Concomitant]
     Active Substance: PRAVASTATIN
     Indication: Product used for unknown indication
  7. VENLAFAXINE [Concomitant]
     Active Substance: VENLAFAXINE HYDROCHLORIDE
     Indication: Product used for unknown indication
  8. LISINOPRIL [Concomitant]
     Active Substance: LISINOPRIL
     Indication: Product used for unknown indication
  9. PRILOSEC [Concomitant]
     Active Substance: OMEPRAZOLE MAGNESIUM
     Indication: Product used for unknown indication
  10. DILTIAZEM [Concomitant]
     Active Substance: DILTIAZEM
     Indication: Product used for unknown indication

REACTIONS (2)
  - Ovarian cancer recurrent [Unknown]
  - Arthralgia [Not Recovered/Not Resolved]
